FAERS Safety Report 6433988-8 (Version None)
Quarter: 2009Q4

REPORT INFORMATION
  Report Type: 
  Country: None (occurrence: None)
  Receive Date: 20091110
  Receipt Date: 20090831
  Transmission Date: 20100525
  Serious: Yes (Other)
  Sender: FDA-Public Use
  Company Number: PHHY2009JP27618

PATIENT
  Sex: Male

DRUGS (7)
  1. TEGRETOL [Suspect]
     Indication: SCHIZOPHRENIA
     Dosage: 400 MG/DAILY
     Route: 048
     Dates: start: 20081106
  2. RISPERDAL [Suspect]
     Indication: SCHIZOPHRENIA
     Dosage: UNK
     Dates: start: 20040902
  3. RISPERDAL [Suspect]
     Dosage: UNK
     Route: 048
     Dates: start: 20041006
  4. RISPERDAL [Suspect]
     Dosage: UNK
     Dates: start: 20080731
  5. PURSENNID [Concomitant]
     Indication: CONSTIPATION
     Dosage: 12 MG DAILY
     Route: 048
     Dates: start: 20010422
  6. DEPAKENE [Concomitant]
     Indication: SCHIZOPHRENIA
     Dosage: UNK
     Route: 048
     Dates: start: 20080327
  7. AKINETON [Concomitant]
     Dosage: UNK
     Route: 048
     Dates: start: 19770101

REACTIONS (5)
  - BLOOD SODIUM DECREASED [None]
  - DEPRESSED LEVEL OF CONSCIOUSNESS [None]
  - HYPOGLYCAEMIA [None]
  - POST GASTRIC SURGERY SYNDROME [None]
  - VOMITING [None]
